FAERS Safety Report 10334364 (Version 1)
Quarter: 2014Q3

REPORT INFORMATION
  Report Type: Spontaneous
  Country: US (occurrence: US)
  Receive Date: 20140723
  Receipt Date: 20140723
  Transmission Date: 20150326
  Serious: Yes (Other)
  Sender: FDA-Public Use
  Company Number: 2014SP004115

PATIENT
  Age: 47 Year
  Sex: Female

DRUGS (2)
  1. METHOTREXATE [Suspect]
     Active Substance: METHOTREXATE
     Indication: PRODUCT USED FOR UNKNOWN INDICATION
     Dates: start: 20140610, end: 20140709
  2. XELJANZ [Suspect]
     Active Substance: TOFACITINIB CITRATE
     Dates: start: 20140610, end: 20140709

REACTIONS (1)
  - Oral neoplasm [Unknown]
